FAERS Safety Report 7657715-1 (Version None)
Quarter: 2011Q3

REPORT INFORMATION
  Report Type: 
  Country: None (occurrence: None)
  Receive Date: 20110804
  Receipt Date: 20110801
  Transmission Date: 20111222
  Serious: Yes (Other)
  Sender: FDA-Public Use
  Company Number: US-RB-024571-11

PATIENT
  Age: 60 Year
  Sex: Male

DRUGS (4)
  1. SUBOXONE [Suspect]
     Indication: DRUG DEPENDENCE
     Dosage: DOSAGE INFORMATION UNKNOWN
     Route: 065
     Dates: start: 20080301
  2. SUBOXONE [Suspect]
     Indication: DRUG DEPENDENCE
     Dosage: SUBOXONE SUBLINGUAL FILM, DOSAGE UNKNOWN.
     Route: 065
  3. SUBOXONE [Suspect]
     Dosage: DOSAGE INFORMATION UNKNOWN- PRESCRIBED 48 MG DAILY TOOK UP TO 80 MG
     Route: 060
     Dates: start: 20060201
  4. SUBOXONE [Suspect]
     Route: 060
     Dates: start: 20110719, end: 20110726

REACTIONS (20)
  - ABDOMINAL PAIN UPPER [None]
  - CONVULSION [None]
  - BACK PAIN [None]
  - DRUG ABUSE [None]
  - DRUG WITHDRAWAL SYNDROME [None]
  - HYPOTENSION [None]
  - ARTHRALGIA [None]
  - CARDIAC DISORDER [None]
  - UNDERDOSE [None]
  - INTENTIONAL DRUG MISUSE [None]
  - INSOMNIA [None]
  - INTENTIONAL OVERDOSE [None]
  - SUBSTANCE ABUSE [None]
  - TOOTHACHE [None]
  - TOOTH ABSCESS [None]
  - ASTHENIA [None]
  - WEIGHT DECREASED [None]
  - ENERGY INCREASED [None]
  - DECREASED APPETITE [None]
  - FEELING ABNORMAL [None]
